FAERS Safety Report 7350819-2 (Version None)
Quarter: 2011Q1

REPORT INFORMATION
  Report Type: 
  Country: None (occurrence: None)
  Receive Date: 20110314
  Receipt Date: 20110308
  Transmission Date: 20110831
  Serious: No
  Sender: FDA-Public Use
  Company Number: US-PFIZER INC-2011051021

PATIENT
  Sex: Female
  Weight: 54.422 kg

DRUGS (7)
  1. PREMARIN [Suspect]
     Indication: ATROPHIC VULVOVAGINITIS
  2. ZOLEDRONIC ACID [Concomitant]
     Indication: OSTEOPOROSIS
     Dosage: UNK 1X/YEAR
  3. LEVOXYL [Concomitant]
     Indication: THYROID DISORDER
     Dosage: 25 UG, 1X/DAY
  4. PREMARIN [Suspect]
     Indication: VULVOVAGINAL DRYNESS
     Dosage: UNK UNK, 3X/WEEK
     Route: 067
     Dates: start: 20110201
  5. VOLTAREN-XR [Concomitant]
     Indication: FIBROMYALGIA
     Dosage: 100 MG, 1X/DAY
  6. ASCORBIC ACID [Concomitant]
     Indication: VITAMIN SUPPLEMENTATION
     Dosage: 500 MG, 1X/DAY
  7. CALTRATE + D [Concomitant]
     Indication: OSTEOPOROSIS
     Dosage: 1200/800 MG, 2X/DAY

REACTIONS (2)
  - ABDOMINAL PAIN [None]
  - NAUSEA [None]
